FAERS Safety Report 10076008 (Version 2)
Quarter: 2014Q2

REPORT INFORMATION
  Report Type: Spontaneous
  Country: US (occurrence: US)
  Receive Date: 20140414
  Receipt Date: 20140414
  Transmission Date: 20141212
  Serious: Yes (Other)
  Sender: FDA-Public Use
  Company Number: US-BAYER-2013-145754

PATIENT
  Age: 26 Year
  Sex: Female
  Weight: 70.3 kg

DRUGS (1)
  1. MIRENA [Suspect]
     Indication: CONTRACEPTION
     Dosage: 20 MCG/24HR, CONT
     Route: 015
     Dates: start: 20121207, end: 20131115

REACTIONS (28)
  - Panic attack [Recovering/Resolving]
  - Depression suicidal [Recovering/Resolving]
  - Ovarian cyst [Recovering/Resolving]
  - Vaginal pH abnormal [Recovering/Resolving]
  - Chest pain [Recovering/Resolving]
  - Chest discomfort [Recovering/Resolving]
  - Throat tightness [Recovering/Resolving]
  - Palpitations [Recovering/Resolving]
  - Panic reaction [Recovering/Resolving]
  - Dizziness [Recovering/Resolving]
  - Blindness transient [Recovering/Resolving]
  - Deafness transitory [Recovering/Resolving]
  - Dyspnoea [Recovering/Resolving]
  - Tremor [Recovering/Resolving]
  - Muscle spasms [Recovering/Resolving]
  - Hypoaesthesia [Recovering/Resolving]
  - Paraesthesia [Recovering/Resolving]
  - VIIth nerve paralysis [Recovering/Resolving]
  - Pain in extremity [Recovering/Resolving]
  - Cold sweat [Recovering/Resolving]
  - Insomnia [Recovering/Resolving]
  - Aphagia [Recovering/Resolving]
  - Claustrophobia [Recovering/Resolving]
  - Sleep terror [Recovering/Resolving]
  - Crying [Recovering/Resolving]
  - Fear [Recovering/Resolving]
  - Dysarthria [Recovering/Resolving]
  - Dysphagia [Recovering/Resolving]
